FAERS Safety Report 7907623-3 (Version None)
Quarter: 2011Q4

REPORT INFORMATION
  Report Type: 
  Country: None (occurrence: None)
  Receive Date: 20111110
  Receipt Date: 20111107
  Transmission Date: 20120403
  Serious: Yes (Death, Other)
  Sender: FDA-Public Use
  Company Number: PHHY2011BR098252

PATIENT
  Sex: Male

DRUGS (8)
  1. OMEPRAZOLE [Concomitant]
     Dosage: 1 DF, QD, IN THE MORNING
  2. CLOPIDOGREL [Concomitant]
     Indication: CAROTID ARTERY THROMBOSIS
  3. ANTIHYPERTENSIVES [Concomitant]
     Indication: BLOOD PRESSURE
     Dosage: 1 DF, QD,IN THE MORNING
  4. PROSTAT [Concomitant]
     Dosage: 1 DF, QD
  5. IPRATROPIUM BROMIDE [Concomitant]
     Dosage: 1 DF, TID
  6. CLONAZEPAM [Concomitant]
     Dosage: 4 DRP, QD, AT NIGHT
  7. FORMOTEROL FUMARATE [Suspect]
     Indication: EMPHYSEMA
     Dosage: 1 DF, TID
  8. ANTIHYPERTENSIVES [Concomitant]
     Dosage: 1 DF, QD, IN THE AFTERNOON

REACTIONS (8)
  - CARDIAC DISORDER [None]
  - CAROTID ARTERY THROMBOSIS [None]
  - SLEEP DISORDER [None]
  - ISCHAEMIA [None]
  - RESPIRATORY FAILURE [None]
  - POOR PERIPHERAL CIRCULATION [None]
  - OXYGEN CONSUMPTION DECREASED [None]
  - GAIT DISTURBANCE [None]
